FAERS Safety Report 11838347 (Version 1)
Quarter: 2015Q4

REPORT INFORMATION
  Report Type: Spontaneous
  Country: US (occurrence: US)
  Receive Date: 20151215
  Receipt Date: 20151215
  Transmission Date: 20160305
  Serious: Yes (Other)
  Sender: FDA-Public Use
  Company Number: US-ASTRAZENECA-2015SF23780

PATIENT
  Age: 23099 Day
  Sex: Female
  Weight: 91.6 kg

DRUGS (1)
  1. BYDUREON [Suspect]
     Active Substance: EXENATIDE
     Route: 065

REACTIONS (4)
  - Product quality issue [Unknown]
  - Arthropathy [Not Recovered/Not Resolved]
  - Fall [Unknown]
  - Ligament rupture [Unknown]

NARRATIVE: CASE EVENT DATE: 20141201
